FAERS Safety Report 9532591 (Version 1)
Quarter: 2013Q2

REPORT INFORMATION
  Report Type: Spontaneous
  Country: US (occurrence: None)
  Receive Date: 20130503
  Receipt Date: 20130503
  Transmission Date: 20140414
  Serious: Yes (Other)
  Sender: FDA-Public Use
  Company Number: 1000041477

PATIENT
  Age: 71 Year
  Sex: Female

DRUGS (4)
  1. DALIRESP [Suspect]
     Indication: CHRONIC OBSTRUCTIVE PULMONARY DISEASE
     Dosage: 500 MCG (500 MCG, 1 IN 1 D), ORAL
     Route: 048
     Dates: start: 20130105, end: 20130106
  2. PERCOCET (ACETAMINOPHEN, OXYCODONE) (ACETAMINOPHEN, OXYCODONE) [Concomitant]
  3. LAMOTIL (LOMOTIL) (LOMOTIL) [Concomitant]
  4. COLESTIPOL (COLESTIPOL) (COLESTIPOL) [Concomitant]

REACTIONS (1)
  - Nausea [None]
